FAERS Safety Report 6059305-3 (Version None)
Quarter: 2009Q1

REPORT INFORMATION
  Report Type: 
  Country: None (occurrence: None)
  Receive Date: 20090130
  Receipt Date: 20090126
  Transmission Date: 20090719
  Serious: Yes (Life-Threatening)
  Sender: FDA-Public Use
  Company Number: JP-EISAI MEDICAL RESEARCH-E2090-00638-SPO-JP

PATIENT
  Sex: Male

DRUGS (15)
  1. EXCEGRAN [Suspect]
     Indication: CONVULSION
     Route: 048
     Dates: start: 20081125, end: 20081227
  2. EXCEGRAN [Suspect]
     Route: 048
     Dates: start: 20081218, end: 20081225
  3. GASMOTIN [Concomitant]
     Indication: ANOREXIA
     Route: 048
     Dates: start: 20081218, end: 20081222
  4. FOIPAN [Concomitant]
     Indication: PANCREATITIS
     Route: 048
     Dates: start: 20081218
  5. TAKEPRON [Concomitant]
     Indication: REFLUX OESOPHAGITIS
     Route: 048
     Dates: start: 20081218
  6. DEPAS [Concomitant]
     Indication: INSOMNIA
     Route: 048
     Dates: start: 20081218
  7. DEPAS [Concomitant]
     Route: 048
     Dates: start: 20081222
  8. ZYLORIC [Concomitant]
     Indication: HYPERURICAEMIA
     Route: 048
  9. PAXIL [Concomitant]
     Indication: DEPRESSION
     Route: 048
     Dates: end: 20081218
  10. PAXIL [Concomitant]
     Route: 048
     Dates: start: 20081218, end: 20081225
  11. CAMOSTATE [Concomitant]
     Indication: PANCREATITIS
     Route: 048
     Dates: end: 20081218
  12. MYSLEE [Concomitant]
     Indication: INSOMNIA
     Route: 048
     Dates: start: 20081118
  13. MAGMITT [Concomitant]
     Indication: CONSTIPATION
     Route: 048
     Dates: start: 20081215
  14. CEFAMEZIN [Concomitant]
     Indication: CONTUSION
     Dosage: ^2 GRAM/DAY DR^
     Dates: start: 20081115, end: 20081117
  15. HIRTONIN [Concomitant]
     Indication: ALTERED STATE OF CONSCIOUSNESS
     Dosage: ^2 GRAM/DAY DR^
     Dates: start: 20081208, end: 20081217

REACTIONS (6)
  - ALANINE AMINOTRANSFERASE INCREASED [None]
  - ANAEMIA [None]
  - ASPARTATE AMINOTRANSFERASE INCREASED [None]
  - LIVER DISORDER [None]
  - PYREXIA [None]
  - WHITE BLOOD CELL COUNT DECREASED [None]
